FAERS Safety Report 10188190 (Version 1)
Quarter: 2014Q2

REPORT INFORMATION
  Report Type: Spontaneous
  Country: IT (occurrence: IT)
  Receive Date: 20140522
  Receipt Date: 20140522
  Transmission Date: 20141212
  Serious: Yes (Hospitalization)
  Sender: FDA-Public Use
  Company Number: IT-PFIZER INC-2014140000

PATIENT
  Age: 62 Year
  Sex: Male

DRUGS (2)
  1. DEPO-MEDROL [Suspect]
     Indication: SYNOVITIS
     Dosage: 40 MG, TOTAL DOSAGE
     Dates: start: 20140512, end: 20140512
  2. BETADINE [Concomitant]

REACTIONS (3)
  - Dermatitis allergic [Recovered/Resolved]
  - Pyrexia [Recovered/Resolved]
  - Vomiting [Recovered/Resolved]
